FAERS Safety Report 5768136-0 (Version None)
Quarter: 2008Q2

REPORT INFORMATION
  Report Type: 
  Country: None (occurrence: None)
  Receive Date: 20080606
  Receipt Date: 20080523
  Transmission Date: 20081010
  Serious: Yes (Life-Threatening, Hospitalization)
  Sender: FDA-Public Use
  Company Number: JP 2008 0029

PATIENT
  Age: 69 Year
  Sex: Female

DRUGS (1)
  1. OXILAN-300 [Suspect]
     Indication: COMPUTERISED TOMOGRAM
     Dosage: 100 ML PER DAY INTRA-VEINOUS
     Route: 042
     Dates: start: 20080310, end: 20080310

REACTIONS (4)
  - BLOOD PRESSURE DECREASED [None]
  - LOSS OF CONSCIOUSNESS [None]
  - NAUSEA [None]
  - RASH [None]
